FAERS Safety Report 8056622-2 (Version None)
Quarter: 2012Q1

REPORT INFORMATION
  Report Type: 
  Country: None (occurrence: None)
  Receive Date: 20120119
  Receipt Date: 20120110
  Transmission Date: 20120608
  Serious: Yes (Other)
  Sender: FDA-Public Use
  Company Number: CHPA2012US000887

PATIENT
  Sex: Male

DRUGS (1)
  1. EXCEDRIN EXTRA STRENGTH CAPLETS [Suspect]
     Indication: HEADACHE
     Dosage: 2-6 DF, QD
     Route: 048

REACTIONS (6)
  - DISORIENTATION [None]
  - VISUAL IMPAIRMENT [None]
  - MALAISE [None]
  - INFLUENZA LIKE ILLNESS [None]
  - DIABETES MELLITUS [None]
  - INCORRECT DRUG ADMINISTRATION DURATION [None]
